FAERS Safety Report 14178723 (Version 1)
Quarter: 2017Q4

REPORT INFORMATION
  Report Type: Spontaneous
  Country: US (occurrence: US)
  Receive Date: 20171110
  Receipt Date: 20171110
  Transmission Date: 20180321
  Serious: Yes (Death, Life-Threatening, Hospitalization, Other)
  Sender: FDA-Public Use
  Company Number: US-APOTEX-2017AP020898

PATIENT
  Age: 20 Year
  Sex: Female

DRUGS (1)
  1. SERTRALINE HYDROCHLORIDE. [Suspect]
     Active Substance: SERTRALINE HYDROCHLORIDE
     Indication: PRODUCT USED FOR UNKNOWN INDICATION
     Route: 065

REACTIONS (9)
  - Unresponsive to stimuli [Fatal]
  - Brain injury [Fatal]
  - Hyperthermia [Fatal]
  - Acute kidney injury [Fatal]
  - Oedema peripheral [Fatal]
  - Tachycardia [Fatal]
  - Toxicity to various agents [Fatal]
  - Rhabdomyolysis [Fatal]
  - Decorticate posture [Fatal]
